FAERS Safety Report 19648348 (Version 1)
Quarter: 2021Q3

REPORT INFORMATION
  Report Type: Other
  Country: CA (occurrence: CA)
  Receive Date: 20210803
  Receipt Date: 20210803
  Transmission Date: 20211014
  Serious: Yes (Disabling)
  Sender: FDA-Public Use
  Company Number: CA-APOTEX-2020AP015218

PATIENT
  Sex: Male

DRUGS (1)
  1. APO?LEVOCARB [Suspect]
     Active Substance: CARBIDOPA\LEVODOPA
     Indication: PARKINSON^S DISEASE
     Dosage: UNK UNK, TID
     Route: 065

REACTIONS (2)
  - Hypokinesia [Recovered/Resolved]
  - Product substitution issue [Recovered/Resolved]
